FAERS Safety Report 17949448 (Version 1)
Quarter: 2020Q2

REPORT INFORMATION
  Report Type: Report from Study
  Country: US (occurrence: US)
  Receive Date: 20200625
  Receipt Date: 20200625
  Transmission Date: 20200714
  Serious: Yes (Other)
  Sender: FDA-Public Use
  Company Number: NVSC2020US176375

PATIENT
  Sex: Female

DRUGS (2)
  1. XIIDRA [Suspect]
     Active Substance: LIFITEGRAST
     Indication: EYE INFLAMMATION
     Dosage: UNK, BID
     Route: 047
     Dates: start: 2019
  2. XIIDRA [Suspect]
     Active Substance: LIFITEGRAST
     Indication: INTRAOCULAR PRESSURE TEST ABNORMAL

REACTIONS (5)
  - Autoimmune eye disorder [Recovered/Resolved]
  - Visual impairment [Recovered/Resolved]
  - Psoriasis [Recovered/Resolved]
  - Glaucoma [Recovered/Resolved]
  - Blindness unilateral [Recovered/Resolved]
